FAERS Safety Report 8605221-X (Version None)
Quarter: 2012Q3

REPORT INFORMATION
  Report Type: 
  Country: None (occurrence: None)
  Receive Date: 20120820
  Receipt Date: 20120809
  Transmission Date: 20120928
  Serious: Yes (Other)
  Sender: FDA-Public Use
  Company Number: US-US-EMD SERONO, INC.-7154544

PATIENT
  Sex: Female

DRUGS (1)
  1. REBIF [Suspect]
     Indication: PRODUCT USED FOR UNKNOWN INDICATION
     Route: 058
     Dates: start: 20110509

REACTIONS (7)
  - SKIN INJURY [None]
  - MUSCLE SPASTICITY [None]
  - OVARIAN CYST [None]
  - IMMUNOGLOBULINS DECREASED [None]
  - FALL [None]
  - VERTIGO [None]
  - OPTIC NEURITIS [None]
